FAERS Safety Report 14741193 (Version 1)
Quarter: 2018Q2

REPORT INFORMATION
  Report Type: Spontaneous
  Country: RO (occurrence: RO)
  Receive Date: 20180410
  Receipt Date: 20180410
  Transmission Date: 20180711
  Serious: Yes (Other)
  Sender: FDA-Public Use
  Company Number: RO-ALLERGAN-1819673US

PATIENT
  Age: 50 Year
  Sex: Female

DRUGS (2)
  1. MESALAZINE UNK [Suspect]
     Active Substance: MESALAMINE
     Indication: IMMUNOSUPPRESSION
     Dosage: UNK
  2. AZATHIOPRINE. [Suspect]
     Active Substance: AZATHIOPRINE
     Indication: IMMUNOSUPPRESSION

REACTIONS (11)
  - Fatigue [Unknown]
  - Clostridium difficile infection [Unknown]
  - Hypocalcaemia [Unknown]
  - Iron deficiency anaemia [Unknown]
  - Weight decreased [Unknown]
  - Hypokalaemia [Unknown]
  - Productive cough [Unknown]
  - Vomiting [Unknown]
  - Abdominal pain upper [Unknown]
  - Diarrhoea haemorrhagic [Unknown]
  - Hypoalbuminaemia [Unknown]
